FAERS Safety Report 8875064 (Version 2)
Quarter: 2012Q4

REPORT INFORMATION
  Report Type: 
  Country: DE (occurrence: DE)
  Receive Date: 20121030
  Receipt Date: 20121206
  Transmission Date: 20130627
  Serious: Yes (Other)
  Sender: FDA-Public Use
  Company Number: DE-ROCHE-1131678

PATIENT
  Age: 26 Year
  Sex: Female
  Weight: 67 kg

DRUGS (3)
  1. LARIAM [Suspect]
     Indication: MALARIA PROPHYLAXIS
     Dosage: DF
     Route: 065
     Dates: start: 20120820, end: 20120903
  2. ZOPICLON [Concomitant]
     Route: 065
     Dates: start: 20120826, end: 20120826
  3. ZOLPIDEM [Concomitant]
     Route: 065
     Dates: start: 20120824, end: 20120824

REACTIONS (4)
  - Initial insomnia [Recovering/Resolving]
  - Abnormal dreams [Recovering/Resolving]
  - Somnambulism [Recovered/Resolved]
  - Depression [Recovered/Resolved]
